FAERS Safety Report 4860169-1 (Version None)
Quarter: 2005Q4

REPORT INFORMATION
  Report Type: 
  Country: None (occurrence: None)
  Receive Date: 20051219
  Receipt Date: 20051201
  Transmission Date: 20060501
  Serious: Yes (Hospitalization)
  Sender: FDA-Public Use
  Company Number: US-ROCHE-427314

PATIENT
  Age: 29 Year
  Sex: Female
  Weight: 61.2 kg

DRUGS (4)
  1. PEGASYS [Suspect]
     Indication: HEPATITIS C
     Dosage: FORM REPORTED AS INJECTABLE.
     Route: 058
     Dates: start: 20050919, end: 20051015
  2. PEGASYS [Suspect]
     Route: 058
     Dates: start: 20051030
  3. COPEGUS [Suspect]
     Indication: HEPATITIS C
     Route: 048
     Dates: start: 20050919, end: 20051015
  4. COPEGUS [Suspect]
     Route: 048
     Dates: start: 20051030

REACTIONS (2)
  - PNEUMONIA [None]
  - SICKLE CELL ANAEMIA WITH CRISIS [None]
